FAERS Safety Report 4356370-6 (Version None)
Quarter: 2004Q2

REPORT INFORMATION
  Report Type: 
  Country: None (occurrence: None)
  Receive Date: 20040512
  Receipt Date: 20040430
  Transmission Date: 20050107
  Serious: Yes (Other)
  Sender: FDA-Public Use
  Company Number: US-BRISTOL-MYERS SQUIBB COMPANY-12576443

PATIENT
  Sex: Female

DRUGS (1)
  1. PRAVACHOL [Suspect]
     Dosage: 7 TABLETS TOTAL
     Route: 048

REACTIONS (3)
  - ABORTION SPONTANEOUS [None]
  - MEDICATION ERROR [None]
  - PREGNANCY [None]
